FAERS Safety Report 25859960 (Version 1)
Quarter: 2025Q3

REPORT INFORMATION
  Report Type: Spontaneous
  Country: AU (occurrence: AU)
  Receive Date: 20250929
  Receipt Date: 20250929
  Transmission Date: 20251021
  Serious: Yes (Other)
  Sender: AMGEN
  Company Number: AU-AMGEN-AUSSP2025192329

PATIENT
  Age: 84 Year
  Sex: Male

DRUGS (1)
  1. PROLIA [Suspect]
     Active Substance: DENOSUMAB
     Indication: Osteoporosis
     Dosage: 60 MILLIGRAM, Q6MO (6-YR DURATION)
     Route: 065
     Dates: start: 2018, end: 202405

REACTIONS (2)
  - Osteonecrosis of external auditory canal [Recovering/Resolving]
  - C-telopeptide increased [Recovering/Resolving]
